FAERS Safety Report 4768011-4 (Version None)
Quarter: 2005Q3

REPORT INFORMATION
  Report Type: 
  Country: None (occurrence: None)
  Receive Date: 20050913
  Receipt Date: 20050830
  Transmission Date: 20060218
  Serious: Yes (Disabling)
  Sender: FDA-Public Use
  Company Number: 200506602

PATIENT
  Age: 53 Year
  Sex: Female
  Weight: 49.8957 kg

DRUGS (6)
  1. BOTOX COSMETIC [Suspect]
     Indication: HEADACHE
  2. BOTOX COSMETIC [Suspect]
     Indication: SKIN WRINKLING
  3. BOTOX COSMETIC [Suspect]
     Indication: HEADACHE
  4. BOTOX COSMETIC [Suspect]
     Indication: SKIN WRINKLING
  5. AZMACORT [Concomitant]
  6. ALBUTEROL [Concomitant]

REACTIONS (16)
  - CSF OLIGOCLONAL BAND PRESENT [None]
  - DEMYELINATION [None]
  - DIFFICULTY IN WALKING [None]
  - DYSGEUSIA [None]
  - GAIT DISTURBANCE [None]
  - HYPOAESTHESIA [None]
  - IMPAIRED WORK ABILITY [None]
  - LETHARGY [None]
  - LEUKOENCEPHALOMYELITIS [None]
  - LOSS OF PROPRIOCEPTION [None]
  - MUCOUS MEMBRANE DISORDER [None]
  - MUSCLE TIGHTNESS [None]
  - NEUROPATHY PERIPHERAL [None]
  - PARAESTHESIA [None]
  - PAROSMIA [None]
  - SLEEP DISORDER [None]
